FAERS Safety Report 14471533 (Version 2)
Quarter: 2018Q1

REPORT INFORMATION
  Report Type: Spontaneous
  Country: FR (occurrence: FR)
  Receive Date: 20180131
  Receipt Date: 20180221
  Transmission Date: 20180509
  Serious: Yes (Other)
  Sender: FDA-Public Use
  Company Number: FR-ABBVIE-18K-056-2239263-00

PATIENT
  Age: 25 Year
  Sex: Male

DRUGS (1)
  1. HUMIRA [Suspect]
     Active Substance: ADALIMUMAB
     Indication: CROHN^S DISEASE
     Route: 058
     Dates: start: 20081006, end: 201706

REACTIONS (2)
  - Back pain [Unknown]
  - Lymphoma [Recovering/Resolving]

NARRATIVE: CASE EVENT DATE: 201703
